FAERS Safety Report 20005587 (Version 1)
Quarter: 2021Q4

REPORT INFORMATION
  Report Type: Spontaneous
  Country: US (occurrence: US)
  Receive Date: 20211028
  Receipt Date: 20211028
  Transmission Date: 20220303
  Serious: No
  Sender: FDA-Public Use
  Company Number: US-BEH-2021137061

PATIENT
  Sex: Female

DRUGS (13)
  1. BERINERT [Suspect]
     Active Substance: HUMAN C1-ESTERASE INHIBITOR
     Indication: Hereditary angioedema
     Dosage: 4000 INTERNATIONAL UNIT, BIW
     Route: 058
     Dates: start: 20210201
  2. BERINERT [Suspect]
     Active Substance: HUMAN C1-ESTERASE INHIBITOR
     Indication: Prophylaxis
  3. BUMETANIDE [Concomitant]
     Active Substance: BUMETANIDE
  4. DANAZOL [Concomitant]
     Active Substance: DANAZOL
  5. DILTIAZEM HYDROCHLORIDE [Concomitant]
     Active Substance: DILTIAZEM HYDROCHLORIDE
  6. FENOFIBRATE [Concomitant]
     Active Substance: FENOFIBRATE
  7. FLUTICASONE PROPIONATE [Concomitant]
     Active Substance: FLUTICASONE PROPIONATE
  8. LEVOTHYROXINE SODIUM [Concomitant]
     Active Substance: LEVOTHYROXINE SODIUM
  9. METOPROLOL SUCCINATE [Concomitant]
     Active Substance: METOPROLOL SUCCINATE
  10. VITAMINS [Concomitant]
     Active Substance: VITAMINS
  11. OMEPRAZOLE [Concomitant]
     Active Substance: OMEPRAZOLE
  12. POTASSIUM [Concomitant]
     Active Substance: POTASSIUM
  13. VITAMIN D3 [Concomitant]
     Active Substance: CHOLECALCIFEROL

REACTIONS (2)
  - Oropharyngeal pain [Not Recovered/Not Resolved]
  - Malaise [Not Recovered/Not Resolved]
